FAERS Safety Report 10775034 (Version 1)
Quarter: 2015Q1

REPORT INFORMATION
  Report Type: Spontaneous
  Country: GB (occurrence: GB)
  Receive Date: 20150209
  Receipt Date: 20150209
  Transmission Date: 20150721
  Serious: Yes (Hospitalization, Other)
  Sender: FDA-Public Use
  Company Number: GB-JNJFOC-20150202980

PATIENT
  Sex: Female

DRUGS (2)
  1. REMICADE [Suspect]
     Active Substance: INFLIXIMAB
     Indication: CROHN^S DISEASE
     Dosage: DOSE: 300 (UNITS UNSPECIFIED)
     Route: 042
     Dates: start: 20140220, end: 20141202
  2. TIOGUANINE [Concomitant]
     Active Substance: THIOGUANINE ANHYDROUS
     Route: 065

REACTIONS (3)
  - Peroneal nerve palsy [Unknown]
  - Hypoaesthesia [Unknown]
  - Demyelination [Not Recovered/Not Resolved]

NARRATIVE: CASE EVENT DATE: 20141010
